FAERS Safety Report 10189947 (Version 2)
Quarter: 2014Q2

REPORT INFORMATION
  Report Type: Spontaneous
  Country: FR (occurrence: FR)
  Receive Date: 20140522
  Receipt Date: 20140602
  Transmission Date: 20141212
  Serious: Yes (Other)
  Sender: FDA-Public Use
  Company Number: PHHY2014FR058925

PATIENT
  Age: 41 Year
  Sex: Male
  Weight: 75 kg

DRUGS (10)
  1. SUXAMETHONIUM CHLORIDE [Suspect]
     Indication: ANAESTHESIA
     Dosage: 80 MG, 1.1 MG/KG
     Route: 065
  2. SULFAMETHOXAZOLE [Concomitant]
     Dosage: 800 MG/DAY
     Route: 048
  3. TRIMETHOPRIM [Concomitant]
     Dosage: 160 MG/DAY
  4. PREDNISONE [Concomitant]
     Dosage: 20 MG/DAY
     Route: 048
  5. MYCOPHENOLATE MOFETIL [Concomitant]
     Dosage: 2 G/DAY
     Route: 048
  6. TACROLIMUS [Concomitant]
     Dosage: 9 MG/DAY
  7. THIOPENTAL SODIUM [Concomitant]
     Indication: ANAESTHESIA
     Dosage: 300 MG, UNK
  8. SUFENTANIL [Concomitant]
     Indication: ANAESTHESIA
  9. DESFLURANE [Concomitant]
     Indication: ANAESTHESIA
  10. CEFAZOLIN [Concomitant]
     Indication: PROPHYLAXIS
     Dosage: 2 G, UNK
     Route: 042

REACTIONS (1)
  - Neuromuscular block prolonged [Unknown]
